FAERS Safety Report 12376389 (Version 1)
Quarter: 2016Q2

REPORT INFORMATION
  Report Type: Spontaneous
  Country: US (occurrence: US)
  Receive Date: 20160517
  Receipt Date: 20160517
  Transmission Date: 20160815
  Serious: Yes (Other)
  Sender: FDA-Public Use
  Company Number: US-SA-2016SA092517

PATIENT
  Age: 61 Year
  Sex: Female

DRUGS (6)
  1. SOLOSTAR [Concomitant]
     Active Substance: DEVICE
     Indication: TYPE 1 DIABETES MELLITUS
     Dates: start: 201511
  2. LANTUS [Concomitant]
     Active Substance: INSULIN GLARGINE
     Dates: end: 201511
  3. SOLOSTAR [Concomitant]
     Active Substance: DEVICE
     Indication: TYPE 1 DIABETES MELLITUS
  4. HUMALOG [Concomitant]
     Active Substance: INSULIN LISPRO
  5. TOUJEO [Suspect]
     Active Substance: INSULIN GLARGINE
     Indication: TYPE 1 DIABETES MELLITUS
     Dosage: DOSE:30 UNIT(S)
     Route: 065
  6. TOUJEO [Suspect]
     Active Substance: INSULIN GLARGINE
     Indication: TYPE 1 DIABETES MELLITUS
     Dosage: DOSE:45 UNIT(S)
     Route: 065
     Dates: start: 201511

REACTIONS (4)
  - Pancreatitis [Unknown]
  - Blood glucose decreased [Unknown]
  - Diarrhoea [Unknown]
  - Weight decreased [Unknown]

NARRATIVE: CASE EVENT DATE: 201602
